FAERS Safety Report 17736807 (Version 1)
Quarter: 2020Q2

REPORT INFORMATION
  Report Type: Report from Study
  Country: None (occurrence: US)
  Receive Date: 20200502
  Receipt Date: 20200502
  Transmission Date: 20200714
  Serious: Yes (Other)
  Sender: FDA-Public Use
  Company Number: US-ABBVIE-19K-163-2961141-00

PATIENT
  Age: 71 Year
  Sex: Male

DRUGS (3)
  1. PERCOCET [Concomitant]
     Active Substance: ACETAMINOPHEN\OXYCODONE HYDROCHLORIDE
     Indication: PRODUCT USED FOR UNKNOWN INDICATION
  2. HUMIRA [Suspect]
     Active Substance: ADALIMUMAB
     Indication: PSORIASIS
     Route: 058
  3. HUMIRA [Suspect]
     Active Substance: ADALIMUMAB
     Indication: PSORIATIC ARTHROPATHY

REACTIONS (10)
  - Exostosis [Recovered/Resolved]
  - Knee arthroplasty [Unknown]
  - Spinal operation [Recovering/Resolving]
  - Fatigue [Not Recovered/Not Resolved]
  - Condition aggravated [Unknown]
  - Toe operation [Unknown]
  - Oral lichen planus [Not Recovered/Not Resolved]
  - Spinal fusion surgery [Recovering/Resolving]
  - Neuropathy peripheral [Unknown]
  - Muscle twitching [Unknown]

NARRATIVE: CASE EVENT DATE: 2005
